FAERS Safety Report 18169089 (Version 1)
Quarter: 2020Q3

REPORT INFORMATION
  Report Type: Report from Study
  Country: BR (occurrence: BR)
  Receive Date: 20200819
  Receipt Date: 20200819
  Transmission Date: 20201103
  Serious: Yes (Other)
  Sender: FDA-Public Use
  Company Number: NVSC2020BR175787

PATIENT
  Age: 40 Year
  Sex: Male

DRUGS (2)
  1. COSENTYX [Suspect]
     Active Substance: SECUKINUMAB
     Indication: PSORIATIC ARTHROPATHY
     Dosage: 150 MG, Q4W (EVERY 28 DAYS)
     Route: 065
     Dates: start: 20200308
  2. COSENTYX [Suspect]
     Active Substance: SECUKINUMAB
     Dosage: 150 MG, UNKNOWN
     Route: 065
     Dates: start: 20200605, end: 20200731

REACTIONS (10)
  - Back injury [Recovering/Resolving]
  - Urine analysis abnormal [Unknown]
  - Abdominal injury [Recovering/Resolving]
  - Angina pectoris [Not Recovered/Not Resolved]
  - Joint injury [Recovering/Resolving]
  - Vomiting [Recovered/Resolved]
  - Skin lesion [Not Recovered/Not Resolved]
  - Limb injury [Recovering/Resolving]
  - Headache [Recovered/Resolved]
  - Nausea [Recovered/Resolved]

NARRATIVE: CASE EVENT DATE: 2020
